FAERS Safety Report 4636386-2 (Version None)
Quarter: 2005Q2

REPORT INFORMATION
  Report Type: 
  Country: None (occurrence: None)
  Receive Date: 20050415
  Receipt Date: 20050204
  Transmission Date: 20051028
  Serious: Yes (Life-Threatening, Hospitalization)
  Sender: FDA-Public Use
  Company Number: GB-ROCHE-394697

PATIENT
  Age: 20 Year
  Sex: Female

DRUGS (2)
  1. ROACCUTANE [Suspect]
     Indication: ACNE
     Route: 048
     Dates: start: 20040915, end: 20050214
  2. DIANETTE [Suspect]
     Indication: CONTRACEPTION
     Route: 048
     Dates: start: 20040915, end: 20050129

REACTIONS (5)
  - EPILEPSY [None]
  - NO REACTION ON PREVIOUS EXPOSURE TO DRUG [None]
  - PULMONARY EMBOLISM [None]
  - SUPERIOR SAGITTAL SINUS THROMBOSIS [None]
  - THERAPY NON-RESPONDER [None]
